FAERS Safety Report 8574560-3 (Version None)
Quarter: 2012Q3

REPORT INFORMATION
  Report Type: 
  Country: None (occurrence: None)
  Receive Date: 20120806
  Receipt Date: 20120723
  Transmission Date: 20120928
  Serious: Yes (Other)
  Sender: FDA-Public Use
  Company Number: CHPA2012US016586

PATIENT
  Age: 10 Year
  Sex: Female

DRUGS (1)
  1. EXCEDRIN EXTRA STRENGTH TABLETS [Suspect]
     Indication: HYPERSENSITIVITY
     Dosage: 1 DF, UNK
     Route: 048

REACTIONS (5)
  - OVERDOSE [None]
  - OFF LABEL USE [None]
  - INCORRECT DOSE ADMINISTERED [None]
  - CONVULSION [None]
  - THERAPEUTIC RESPONSE UNEXPECTED [None]
